FAERS Safety Report 17042455 (Version 1)
Quarter: 2019Q4

REPORT INFORMATION
  Report Type: Spontaneous
  Country: US (occurrence: US)
  Receive Date: 20191118
  Receipt Date: 20191118
  Transmission Date: 20200122
  Serious: Yes (Other)
  Sender: FDA-Public Use
  Company Number: US-ROCHE-2464982

PATIENT
  Age: 71 Year
  Sex: Female

DRUGS (6)
  1. METRONIDAZOLE. [Suspect]
     Active Substance: METRONIDAZOLE
     Indication: PRODUCT USED FOR UNKNOWN INDICATION
     Route: 065
  2. ALECENSA [Suspect]
     Active Substance: ALECTINIB HYDROCHLORIDE
     Indication: LUNG NEOPLASM MALIGNANT
     Route: 048
     Dates: start: 20190516
  3. PROMISEB [Concomitant]
     Active Substance: DEVICE
  4. CYCLOBENZAPRINE. [Concomitant]
     Active Substance: CYCLOBENZAPRINE
  5. METOPROLOL. [Concomitant]
     Active Substance: METOPROLOL
  6. SF 5000 PLUS [Concomitant]
     Active Substance: SODIUM FLUORIDE

REACTIONS (10)
  - Fatigue [Unknown]
  - Neuropathy peripheral [Unknown]
  - Constipation [Unknown]
  - Fluid retention [Unknown]
  - Nausea [Unknown]
  - Neoplasm malignant [Unknown]
  - Dyspnoea [Unknown]
  - Somnolence [Unknown]
  - Alopecia [Unknown]
  - Vomiting [Unknown]
